FAERS Safety Report 7458307-X (Version None)
Quarter: 2011Q2

REPORT INFORMATION
  Report Type: 
  Country: None (occurrence: None)
  Receive Date: 20110504
  Receipt Date: 20110426
  Transmission Date: 20111010
  Serious: Yes (Other)
  Sender: FDA-Public Use
  Company Number: JP-PFIZER INC-2011075417

PATIENT
  Age: 24 Year
  Sex: Male

DRUGS (9)
  1. PIPERACILLIN AND TAZOBACTAM [Concomitant]
     Dosage: 4.5 G, 3X/DAY
     Route: 065
  2. TOBRAMYCIN [Concomitant]
     Dosage: 60 MG, 3X/DAY
     Route: 055
  3. ZYVOX [Suspect]
     Indication: PNEUMONIA
     Dosage: 600 MG, 2X/DAY
     Route: 041
     Dates: start: 20090223, end: 20090302
  4. TOBRAMYCIN [Concomitant]
     Dosage: 120 MG, 3X/DAY
     Route: 055
  5. ISEPAMICIN [Concomitant]
     Dosage: 400 MG, 1X/DAY
     Route: 065
  6. TOBRAMYCIN [Concomitant]
     Dosage: 120 MG, 4X/DAY
     Route: 055
  7. PIPERACILLIN AND TAZOBACTAM [Concomitant]
     Dosage: 4.5 G, 4X/DAY
     Route: 065
  8. COLISTIN [Concomitant]
     Dosage: 100 MG, 2X/DAY
     Route: 065
  9. TOBRAMYCIN [Concomitant]
     Dosage: 60 MG, 3X/DAY
     Route: 045

REACTIONS (1)
  - RENAL IMPAIRMENT [None]
